FAERS Safety Report 19424054 (Version 1)
Quarter: 2021Q2

REPORT INFORMATION
  Report Type: Spontaneous
  Country: US (occurrence: US)
  Receive Date: 20210616
  Receipt Date: 20210616
  Transmission Date: 20210717
  Serious: Yes (Other)
  Sender: FDA-Public Use
  Company Number: US-PFIZER INC-2021651491

PATIENT
  Age: 58 Year
  Sex: Male
  Weight: 113.4 kg

DRUGS (1)
  1. CHANTIX [Suspect]
     Active Substance: VARENICLINE TARTRATE
     Indication: SMOKING CESSATION THERAPY
     Dosage: UNK

REACTIONS (9)
  - Blindness unilateral [Unknown]
  - Cerebrovascular accident [Unknown]
  - Coma [Unknown]
  - Craniocerebral injury [Unknown]
  - Wheelchair user [Unknown]
  - Muscular weakness [Unknown]
  - Testicular atrophy [Unknown]
  - Road traffic accident [Unknown]
  - Feeling of despair [Unknown]
